FAERS Safety Report 21279508 (Version 1)
Quarter: 2022Q3

REPORT INFORMATION
  Report Type: Spontaneous
  Country: FR (occurrence: FR)
  Receive Date: 20220901
  Receipt Date: 20220901
  Transmission Date: 20221027
  Serious: Yes (Hospitalization)
  Sender: FDA-Public Use
  Company Number: FR-AFSSAPS-PO20221540

PATIENT
  Sex: Female
  Weight: 1.59 kg

DRUGS (6)
  1. ASPIRIN [Suspect]
     Active Substance: ASPIRIN
     Indication: Hidradenitis
     Dosage: 100 MILLIGRAM, ONCE A DAY
     Route: 064
     Dates: start: 20201008
  2. ENOXAPARIN [Suspect]
     Active Substance: ENOXAPARIN
     Indication: Thrombosis prophylaxis
     Dosage: 40 MILLIGRAM, ONCE A DAY
     Route: 064
  3. ESOMEPRAZOLE [Suspect]
     Active Substance: ESOMEPRAZOLE
     Indication: Duodenogastric reflux
     Dosage: 15 MILLIGRAM, ONCE A DAY
     Route: 064
  4. CIMZIA [Suspect]
     Active Substance: CERTOLIZUMAB PEGOL
     Indication: Hidradenitis
     Dosage: 400 MILLIGRAM, EVERY 2 WEEKS
     Route: 064
     Dates: start: 20201008, end: 20210406
  5. COLCHICINE [Suspect]
     Active Substance: COLCHICINE
     Indication: Hidradenitis
     Dosage: 1 MILLIGRAM, ONCE A DAY
     Route: 064
     Dates: start: 20201008, end: 20210424
  6. PREDNISONE [Suspect]
     Active Substance: PREDNISONE
     Indication: Hidradenitis
     Dosage: 20 MILLIGRAM, ONCE A DAY
     Route: 064
     Dates: start: 20201008, end: 20210424

REACTIONS (1)
  - Premature baby [Recovered/Resolved]

NARRATIVE: CASE EVENT DATE: 20210424
